FAERS Safety Report 11860771 (Version 1)
Quarter: 2015Q4

REPORT INFORMATION
  Report Type: Spontaneous
  Country: AT (occurrence: AT)
  Receive Date: 20151222
  Receipt Date: 20151222
  Transmission Date: 20160305
  Serious: Yes (Other)
  Sender: FDA-Public Use
  Company Number: PHHY2015AT166472

PATIENT
  Sex: Female

DRUGS (7)
  1. NORVASC [Concomitant]
     Active Substance: AMLODIPINE BESYLATE
     Indication: PRODUCT USED FOR UNKNOWN INDICATION
     Dosage: 5 MG, QD
     Route: 065
  2. DEANXIT [Suspect]
     Active Substance: FLUPENTIXOL DIHYDROCHLORIDE\MELITRACEN HYDROCHLORIDE
     Indication: PRODUCT USED FOR UNKNOWN INDICATION
     Dosage: 1 DF, QD
     Route: 065
  3. EUTHYROX [Concomitant]
     Active Substance: LEVOTHYROXINE SODIUM
     Indication: PRODUCT USED FOR UNKNOWN INDICATION
     Dosage: 87.5 UG, QD
     Route: 065
  4. THROMBO ASS [Suspect]
     Active Substance: ASPIRIN
     Indication: PRODUCT USED FOR UNKNOWN INDICATION
     Dosage: 100 MG, QD
     Route: 065
  5. ATACAND PLUS [Concomitant]
     Active Substance: CANDESARTAN CILEXETIL\HYDROCHLOROTHIAZIDE
     Indication: HYPERTENSION
     Dosage: 1 DF, QD
     Route: 065
  6. EXELON [Suspect]
     Active Substance: RIVASTIGMINE TARTRATE
     Indication: PRODUCT USED FOR UNKNOWN INDICATION
     Dosage: 4.6 MG/ 24 HRS
     Route: 062
  7. CONCOR [Concomitant]
     Active Substance: BISOPROLOL FUMARATE
     Indication: PRODUCT USED FOR UNKNOWN INDICATION
     Dosage: 5 MG, BID
     Route: 065

REACTIONS (30)
  - Abnormal faeces [Recovered/Resolved]
  - Gastrointestinal hypomotility [Unknown]
  - Faeces soft [Recovered/Resolved]
  - Nausea [Unknown]
  - Dementia [Unknown]
  - Irritability [Unknown]
  - Mydriasis [Unknown]
  - Dysphagia [Unknown]
  - Faeces soft [Recovered/Resolved]
  - Abdominal pain upper [Unknown]
  - Decreased appetite [Unknown]
  - Faeces soft [Recovered/Resolved]
  - Malaise [Recovered/Resolved]
  - Weight decreased [Unknown]
  - Back pain [Unknown]
  - Nervousness [Unknown]
  - Rash macular [Unknown]
  - Asthenia [Unknown]
  - Dry eye [Unknown]
  - Anxiety [Unknown]
  - Diarrhoea [Recovered/Resolved]
  - Oedema peripheral [Unknown]
  - Diarrhoea [Recovered/Resolved]
  - Eyelid irritation [Unknown]
  - Metabolic acidosis [Unknown]
  - Joint swelling [Unknown]
  - Disorientation [Unknown]
  - Dysgeusia [Unknown]
  - Memory impairment [Unknown]
  - Tremor [Unknown]

NARRATIVE: CASE EVENT DATE: 20150424
